FAERS Safety Report 8451583-6 (Version None)
Quarter: 2012Q2

REPORT INFORMATION
  Report Type: 
  Country: None (occurrence: None)
  Receive Date: 20120620
  Receipt Date: 20120611
  Transmission Date: 20120825
  Serious: Yes (Other)
  Sender: FDA-Public Use
  Company Number: CA-JNJFOC-20120605398

PATIENT
  Sex: Male
  Weight: 72 kg

DRUGS (1)
  1. REMICADE [Suspect]
     Indication: CROHN'S DISEASE
     Route: 042
     Dates: start: 20090101

REACTIONS (6)
  - DERMATITIS ACNEIFORM [None]
  - TRISMUS [None]
  - ASTHENIA [None]
  - MUSCLE TWITCHING [None]
  - DRUG EFFECT DECREASED [None]
  - CROHN'S DISEASE [None]
